FAERS Safety Report 6270059-8 (Version None)
Quarter: 2009Q3

REPORT INFORMATION
  Report Type: 
  Country: None (occurrence: None)
  Receive Date: 20090716
  Receipt Date: 20090710
  Transmission Date: 20100115
  Serious: Yes (Other)
  Sender: FDA-Public Use
  Company Number: US-JNJCH-2009018928

PATIENT
  Age: 12 Year
  Sex: Male
  Weight: 35.8 kg

DRUGS (1)
  1. DRAMAMINE [Suspect]
     Indication: MOTION SICKNESS
     Dosage: TEXT:ONE TABLET ONCE
     Route: 048
     Dates: start: 20090710, end: 20090710

REACTIONS (4)
  - ABDOMINAL DISCOMFORT [None]
  - MUSCULOSKELETAL STIFFNESS [None]
  - PARAESTHESIA [None]
  - SOMNOLENCE [None]
